FAERS Safety Report 9681538 (Version 1)
Quarter: 2013Q4

REPORT INFORMATION
  Report Type: Spontaneous
  Country: FI (occurrence: FI)
  Receive Date: 20131111
  Receipt Date: 20131111
  Transmission Date: 20140711
  Serious: Yes (Other)
  Sender: FDA-Public Use
  Company Number: FI-GLAXOSMITHKLINE-B0941232A

PATIENT
  Age: 43 Year
  Sex: Female

DRUGS (9)
  1. BENLYSTA [Suspect]
     Indication: SYSTEMIC LUPUS ERYTHEMATOSUS
     Dosage: 920MG PER DAY
     Route: 042
     Dates: start: 20130927
  2. PREDNISOLON [Concomitant]
     Route: 065
  3. AZAMUN [Concomitant]
     Dosage: 50MG THREE TIMES PER DAY
     Route: 065
  4. SOMAC [Concomitant]
     Route: 065
  5. KALEORID [Concomitant]
     Route: 065
  6. KALCIPOS-D [Concomitant]
     Dosage: 2TAB PER DAY
     Route: 065
  7. VITAMIN D [Concomitant]
     Dosage: 20MG AS REQUIRED
     Route: 065
  8. BURANA [Concomitant]
     Route: 065
  9. FURESIS [Concomitant]
     Route: 065

REACTIONS (8)
  - Suicidal ideation [Recovered/Resolved]
  - Abdominal pain upper [Recovered/Resolved]
  - Vomiting [Recovered/Resolved]
  - Diarrhoea [Recovered/Resolved]
  - Depression [Recovered/Resolved]
  - Tearfulness [Recovered/Resolved]
  - Dizziness [Recovered/Resolved]
  - Pyrexia [Recovered/Resolved]
